FAERS Safety Report 10540197 (Version 1)
Quarter: 2014Q4

REPORT INFORMATION
  Report Type: Spontaneous
  Country: US (occurrence: US)
  Receive Date: 20141024
  Receipt Date: 20141024
  Transmission Date: 20150529
  Serious: Yes (Other)
  Sender: FDA-Public Use
  Company Number: US-ASTRAZENECA-2014SE78994

PATIENT
  Age: 21198 Day
  Sex: Female
  Weight: 54.4 kg

DRUGS (2)
  1. LEXAPRO [Concomitant]
     Active Substance: ESCITALOPRAM OXALATE
     Indication: DEPRESSION
  2. SEROQUEL XR [Suspect]
     Active Substance: QUETIAPINE FUMARATE
     Indication: DEMENTIA
     Route: 048
     Dates: end: 20141003

REACTIONS (9)
  - Loss of consciousness [Recovered/Resolved]
  - Respiratory arrest [Recovered/Resolved]
  - Eye movement disorder [Recovered/Resolved]
  - Dysphagia [Recovered/Resolved]
  - Head injury [Recovered/Resolved]
  - Cold sweat [Recovered/Resolved]
  - Dizziness [Recovered/Resolved]
  - Product use issue [Unknown]
  - Incoherent [Recovered/Resolved]

NARRATIVE: CASE EVENT DATE: 20141002
